FAERS Safety Report 23418158 (Version 1)
Quarter: 2024Q1

REPORT INFORMATION
  Report Type: Spontaneous
  Country: US (occurrence: US)
  Receive Date: 20240118
  Receipt Date: 20240118
  Transmission Date: 20240410
  Serious: No
  Sender: FDA-Public Use
  Company Number: ENDG23-05140

PATIENT
  Sex: Female

DRUGS (2)
  1. PERCOCET [Suspect]
     Active Substance: ACETAMINOPHEN\OXYCODONE HYDROCHLORIDE
     Indication: Back pain
     Dosage: UNK UNKNOWN, UNKNOWN (PATIENT WAS PROBABLY TAKING A LOWER DOSE OF PERCOCET, PROBABLY 7.5/325)
     Route: 065
  2. PERCOCET [Suspect]
     Active Substance: ACETAMINOPHEN\OXYCODONE HYDROCHLORIDE
     Indication: Fibromyalgia

REACTIONS (4)
  - Malaise [Unknown]
  - Constipation [Unknown]
  - Abdominal discomfort [Unknown]
  - Product substitution issue [Unknown]
